FAERS Safety Report 24287926 (Version 1)
Quarter: 2024Q3

REPORT INFORMATION
  Report Type: Spontaneous
  Country: US (occurrence: None)
  Receive Date: 20240905
  Receipt Date: 20240905
  Transmission Date: 20241017
  Serious: Yes (Other)
  Sender: Public
  Company Number: None

PATIENT
  Age: 66 Year
  Sex: Female

DRUGS (1)
  1. TERIPARATIDE [Suspect]
     Active Substance: TERIPARATIDE
     Indication: Osteoporosis
     Dosage: 20 UG MICROGRAM(S)  DAILY SUBCUTANEOUS
     Route: 058

REACTIONS (10)
  - Diarrhoea [None]
  - Nausea [None]
  - Retching [None]
  - Headache [None]
  - Flushing [None]
  - Back pain [None]
  - Neck pain [None]
  - Arthralgia [None]
  - Hypoaesthesia [None]
  - Nasal congestion [None]

NARRATIVE: CASE EVENT DATE: 20240904
